FAERS Safety Report 13030565 (Version 1)
Quarter: 2016Q4

REPORT INFORMATION
  Report Type: Spontaneous
  Country: US (occurrence: US)
  Receive Date: 20161215
  Receipt Date: 20161215
  Transmission Date: 20170207
  Serious: Yes (Other)
  Sender: FDA-Public Use
  Company Number: US-PFIZER INC-2016571704

PATIENT
  Age: 8 Decade
  Sex: Female
  Weight: 61.68 kg

DRUGS (2)
  1. GLUCOTROL XL [Suspect]
     Active Substance: GLIPIZIDE
     Dosage: 10 MG, DAILY
  2. GLUCOTROL XL [Suspect]
     Active Substance: GLIPIZIDE
     Indication: DIABETES MELLITUS
     Dosage: 30 MG (3 TABLETS), DAILY
     Dates: start: 1993

REACTIONS (6)
  - Head injury [Unknown]
  - Amnesia [Unknown]
  - Blood glucose decreased [Unknown]
  - Body height decreased [Unknown]
  - Blindness [Not Recovered/Not Resolved]
  - Fall [Unknown]

NARRATIVE: CASE EVENT DATE: 2009
